FAERS Safety Report 9203364 (Version 2)
Quarter: 2013Q4

REPORT INFORMATION
  Report Type: Spontaneous
  Country: US (occurrence: US)
  Receive Date: 20130402
  Receipt Date: 20131230
  Transmission Date: 20140711
  Serious: Yes (Hospitalization, Other)
  Sender: FDA-Public Use
  Company Number: US-BAYER-2013-039190

PATIENT
  Age: 27 Year
  Sex: Female

DRUGS (16)
  1. YAZ [Suspect]
  2. DICYCLOMINE [Concomitant]
     Dosage: 10 MG, QID
     Route: 048
  3. METRONIDAZOLE [Concomitant]
     Dosage: 500 MG, EVERY 8 HOURS
     Route: 048
  4. CALCIUM WITH VITAMIN D [Concomitant]
     Dosage: 500 MG, BID
     Route: 048
  5. FUROSEMIDE [Concomitant]
     Dosage: 20 MG, DAILY
     Route: 048
  6. HYDROCODONE W/ACETAMINOPHEN [Concomitant]
     Indication: PAIN
     Dosage: 5-325 MG EVERY 6 HOURS AS NEEDED
     Route: 048
  7. LACTULOSE [Concomitant]
     Dosage: 10 GM/15ML, TID
     Route: 048
  8. HYDROMORPHONE [Concomitant]
     Indication: PAIN
     Dosage: 4 MG, HALF OR WHOLE EVERY 6 HOURS AS NEEDED
     Route: 048
  9. MULTIVITAMIN [Concomitant]
     Dosage: 1 DAILY
     Route: 048
  10. PROCHLORPERAZINE [Concomitant]
     Indication: NAUSEA
     Dosage: 5 MG, EVERY 6 HOURS AS NEEDED
     Route: 048
  11. PROPRANOLOL [Concomitant]
     Dosage: 20 MG, TID
     Route: 048
  12. SPIRONOLACTONE [Concomitant]
     Dosage: 25 MG, DAILY
  13. TRAMADOL [Concomitant]
     Indication: PAIN
     Dosage: 50 MG, EVERY 4 HOURS AS NEEDED
     Route: 048
  14. BENTYL [Concomitant]
  15. LASIX [Concomitant]
  16. ALDACTONE A [Concomitant]

REACTIONS (6)
  - Mesenteric vein thrombosis [None]
  - Cholecystectomy [None]
  - Injury [None]
  - Pain [None]
  - Pain [None]
  - Cholecystitis chronic [None]
